FAERS Safety Report 11793071 (Version 1)
Quarter: 2015Q4

REPORT INFORMATION
  Report Type: Spontaneous
  Country: US (occurrence: None)
  Receive Date: 20151201
  Receipt Date: 20151201
  Transmission Date: 20160305
  Serious: No
  Sender: FDA-Public Use
  Company Number: None

PATIENT
  Age: 62 Year
  Sex: Female
  Weight: 81.19 kg

DRUGS (17)
  1. PANTOPRAZOLE SOD [Concomitant]
     Active Substance: PANTOPRAZOLE SODIUM
  2. TIZANIDINE HCL [Concomitant]
     Active Substance: TIZANIDINE HYDROCHLORIDE
  3. OMEGA [Concomitant]
     Active Substance: CONVALLARIA MAJALIS\CRATAEGUS LAEVIGATA LEAF\PROXYPHYLLINE
  4. AUSTRALIAN DREAM ARTHIRISON [Concomitant]
  5. CYMBALTA [Suspect]
     Active Substance: DULOXETINE HYDROCHLORIDE
     Indication: PRODUCT USED FOR UNKNOWN INDICATION
     Dates: start: 20151013, end: 20151015
  6. SYSTANCE BALANCE RESTORATIVE FORMULA EYE DROPS [Concomitant]
  7. ULTIMATE FLORA PROTIOTIC [Concomitant]
  8. FLONASE [Concomitant]
     Active Substance: FLUTICASONE PROPIONATE
  9. AZO YEAST PLUS [Concomitant]
  10. LEVOTHYROXINE. [Concomitant]
     Active Substance: LEVOTHYROXINE
  11. TOPIRAMATE. [Concomitant]
     Active Substance: TOPIRAMATE
  12. KETOROLAC [Concomitant]
     Active Substance: KETOROLAC\KETOROLAC TROMETHAMINE
  13. MEGA RED OMEGA 3 KRILL OIL [Concomitant]
  14. ATENOLOL. [Concomitant]
     Active Substance: ATENOLOL
  15. GAVISCON [Concomitant]
     Active Substance: ALUMINUM HYDROXIDE\MAGNESIUM CARBONATE
  16. AIRBORNE [Concomitant]
     Active Substance: HERBALS\MINERALS\VITAMINS
  17. ALPRAZOLAM. [Concomitant]
     Active Substance: ALPRAZOLAM

REACTIONS (13)
  - Dysuria [None]
  - Heart rate irregular [None]
  - Constipation [None]
  - Migraine [None]
  - Headache [None]
  - Urine flow decreased [None]
  - Heart rate increased [None]
  - Blood pressure increased [None]
  - Muscle spasms [None]
  - Tinnitus [None]
  - Nausea [None]
  - Dry mouth [None]
  - Arthralgia [None]

NARRATIVE: CASE EVENT DATE: 20151013
